FAERS Safety Report 6313187-0 (Version None)
Quarter: 2009Q3

REPORT INFORMATION
  Report Type: 
  Country: None (occurrence: None)
  Receive Date: 20090818
  Receipt Date: 20090812
  Transmission Date: 20100115
  Serious: Yes (Death, Hospitalization)
  Sender: FDA-Public Use
  Company Number: US-CELGENEUS-163-21880-09080995

PATIENT
  Sex: Male

DRUGS (3)
  1. REVLIMID [Suspect]
     Indication: MULTIPLE MYELOMA
     Dosage: 10MG/5MG
     Route: 048
     Dates: start: 20090401
  2. REVLIMID [Suspect]
     Route: 048
     Dates: start: 20080101, end: 20080101
  3. REVLIMID [Suspect]
     Dosage: 10- 5 MG
     Route: 048
     Dates: start: 20070201, end: 20070101

REACTIONS (2)
  - DEATH [None]
  - RENAL DISORDER [None]
